FAERS Safety Report 18083857 (Version 5)
Quarter: 2020Q3

REPORT INFORMATION
  Report Type: Spontaneous
  Country: BR (occurrence: BR)
  Receive Date: 20200729
  Receipt Date: 20200902
  Transmission Date: 20201103
  Serious: Yes (Other)
  Sender: FDA-Public Use
  Company Number: BR-SA-2020SA190735

PATIENT

DRUGS (2)
  1. LANTUS [Suspect]
     Active Substance: INSULIN GLARGINE
     Dosage: 24 IU, QD
     Route: 065
  2. LANTUS [Suspect]
     Active Substance: INSULIN GLARGINE
     Dosage: 16 TO 18 IU, QD
     Route: 065

REACTIONS (7)
  - Diabetes mellitus inadequate control [Recovered/Resolved]
  - Dehydration [Recovered/Resolved]
  - Diabetic metabolic decompensation [Recovered/Resolved]
  - Device defective [Recovered/Resolved]
  - Blood glucose increased [Recovered/Resolved]
  - Incorrect dose administered by device [Recovered/Resolved]
  - Device leakage [Recovered/Resolved]
